FAERS Safety Report 10182886 (Version 2)
Quarter: 2014Q4

REPORT INFORMATION
  Report Type: Spontaneous
  Country: GB (occurrence: GB)
  Receive Date: 20140520
  Receipt Date: 20141112
  Transmission Date: 20150528
  Serious: Yes (Other)
  Sender: FDA-Public Use
  Company Number: GB-009507513-1405GBR008396

PATIENT
  Age: 24 Year
  Sex: Female
  Weight: 64.5 kg

DRUGS (3)
  1. NEXPLANON [Suspect]
     Active Substance: ETONOGESTREL
     Indication: CONTRACEPTION
     Dates: start: 20140502
  2. LOESTRIN NOS [Concomitant]
     Active Substance: ETHINYL ESTRADIOL\NORETHINDRONE ACETATE
     Dates: start: 20140422
  3. DICLOFENAC SODIUM. [Concomitant]
     Active Substance: DICLOFENAC SODIUM
     Dates: start: 20140206, end: 20140215

REACTIONS (4)
  - Implant site pain [Unknown]
  - Hypersensitivity [Not Recovered/Not Resolved]
  - Fibrosis [Not Recovered/Not Resolved]
  - Implant site pruritus [Unknown]

NARRATIVE: CASE EVENT DATE: 20140502
